FAERS Safety Report 6087969-7 (Version None)
Quarter: 2009Q1

REPORT INFORMATION
  Report Type: 
  Country: None (occurrence: None)
  Receive Date: 20090211
  Receipt Date: 20090204
  Transmission Date: 20090719
  Serious: Yes (Other)
  Sender: FDA-Public Use
  Company Number: CHPA2009US02583

PATIENT
  Age: 39 Year
  Sex: Female
  Weight: 56.7 kg

DRUGS (1)
  1. THERAFLU FLU AND SORE THROAT (NCH) (PHENIRAMINE MALEATE, PHENYLEPHRINE [Suspect]
     Indication: INFLUENZA
     Dosage: ORAL
     Route: 048
     Dates: start: 20090202, end: 20090202

REACTIONS (3)
  - ACCIDENTAL EXPOSURE [None]
  - BURNS FIRST DEGREE [None]
  - BURNS SECOND DEGREE [None]
